FAERS Safety Report 10021337 (Version 1)
Quarter: 2014Q1

REPORT INFORMATION
  Report Type: Spontaneous
  Country: IT (occurrence: None)
  Receive Date: 20140313
  Receipt Date: 20140313
  Transmission Date: 20141002
  Serious: Yes (Hospitalization)
  Sender: FDA-Public Use
  Company Number: AUR-APL-2014-02663

PATIENT
  Age: 81 Year
  Sex: Female

DRUGS (1)
  1. CEFTRIAXONE [Suspect]
     Indication: PNEUMONITIS
     Dosage: 2 GM, TOTAL, INTRAVENOUS
     Route: 042
     Dates: start: 20140214, end: 20140214

REACTIONS (2)
  - Hypotension [None]
  - Respiratory arrest [None]
